FAERS Safety Report 19694013 (Version 1)
Quarter: 2021Q3

REPORT INFORMATION
  Report Type: Report from Study
  Country: IT (occurrence: IT)
  Receive Date: 20210812
  Receipt Date: 20210812
  Transmission Date: 20211014
  Serious: Yes (Hospitalization, Other)
  Sender: FDA-Public Use
  Company Number: IT-MYLANLABS-2021M1049574

PATIENT
  Age: 79 Year
  Sex: Female

DRUGS (7)
  1. QUETIAPINE. [Suspect]
     Active Substance: QUETIAPINE
     Indication: PRODUCT USED FOR UNKNOWN INDICATION
     Dosage: 750 MILLIGRAM, TOTAL
     Route: 048
     Dates: start: 20201222, end: 20201222
  2. NITRAZEPAM [Suspect]
     Active Substance: NITRAZEPAM
     Indication: PRODUCT USED FOR UNKNOWN INDICATION
     Dosage: 50 MILLIGRAM, TOTAL
     Route: 048
     Dates: start: 20201222, end: 20201222
  3. LEVOPRAID                          /00314301/ [Concomitant]
     Active Substance: SULPIRIDE
     Dosage: UNK
  4. MIRTAZAPINE. [Suspect]
     Active Substance: MIRTAZAPINE
     Indication: PRODUCT USED FOR UNKNOWN INDICATION
     Dosage: 600 MILLIGRAM, TOTAL
     Route: 048
     Dates: start: 20201222, end: 20201222
  5. BISOPROLOL FUMARATE. [Concomitant]
     Active Substance: BISOPROLOL FUMARATE
     Dosage: 1.25 MILLIGRAM, QD
     Route: 048
  6. RAMIPRIL. [Concomitant]
     Active Substance: RAMIPRIL
     Dosage: 5 MILLIGRAM, QD
  7. WARFARIN SODIUM. [Concomitant]
     Active Substance: WARFARIN SODIUM
     Dosage: UNK

REACTIONS (5)
  - Intentional self-injury [Unknown]
  - Drug abuse [Unknown]
  - Sopor [Unknown]
  - Tachycardia [Unknown]
  - Bradyphrenia [Unknown]

NARRATIVE: CASE EVENT DATE: 20201222
